FAERS Safety Report 9205090 (Version 1)
Quarter: 2013Q2

REPORT INFORMATION
  Report Type: Spontaneous
  Country: US (occurrence: None)
  Receive Date: 20130401
  Receipt Date: 20130401
  Transmission Date: 20140414
  Serious: No
  Sender: FDA-Public Use
  Company Number: None

PATIENT
  Age: 65 Year
  Sex: Female

DRUGS (1)
  1. SUTENT [Suspect]
     Dosage: 37.5 MG QD X 4WKS- OFF 2 WK PO
     Route: 048
     Dates: start: 20121025, end: 20130328

REACTIONS (4)
  - Diarrhoea [None]
  - Dry skin [None]
  - Rash [None]
  - Gastrooesophageal reflux disease [None]
